FAERS Safety Report 6530460-1 (Version None)
Quarter: 2010Q1

REPORT INFORMATION
  Report Type: 
  Country: None (occurrence: None)
  Receive Date: 20100107
  Receipt Date: 20100106
  Transmission Date: 20100710
  Serious: Yes (Hospitalization)
  Sender: FDA-Public Use
  Company Number: US-GILEAD-2010-0026338

PATIENT
  Sex: Male
  Weight: 61.29 kg

DRUGS (15)
  1. LETAIRIS [Suspect]
     Indication: PULMONARY ARTERIAL HYPERTENSION
     Route: 048
     Dates: start: 20080916
  2. REVATIO [Concomitant]
  3. COUMADIN [Concomitant]
  4. FUROSEMIDE [Concomitant]
  5. ADVAIR DISKUS 100/50 [Concomitant]
  6. SPIRIVA [Concomitant]
  7. ALBUTEROL [Concomitant]
  8. SIMVASTATIN [Concomitant]
  9. PANTOPRAZOLE [Concomitant]
  10. ZOLPIDEM TARTRATE [Concomitant]
  11. FERROUS SULFATE TAB [Concomitant]
  12. TRAMADOL HCL [Concomitant]
  13. ACETAMINOPHEN [Concomitant]
  14. CALCIUM CARBONATE [Concomitant]
  15. VITAMIN D [Concomitant]

REACTIONS (2)
  - CHEST PAIN [None]
  - DYSPNOEA [None]
